FAERS Safety Report 20059689 (Version 3)
Quarter: 2022Q2

REPORT INFORMATION
  Report Type: Spontaneous
  Country: US (occurrence: US)
  Receive Date: 20211111
  Receipt Date: 20220617
  Transmission Date: 20220720
  Serious: Yes (Other)
  Sender: FDA-Public Use
  Company Number: US-PFIZER INC-202101506594

PATIENT
  Age: 72 Year
  Sex: Male
  Weight: 129.2 kg

DRUGS (1)
  1. XANAX [Suspect]
     Active Substance: ALPRAZOLAM
     Dosage: 1 MG, 1X/DAY(AT NIGHT TIME)
     Dates: end: 20171011

REACTIONS (16)
  - Neuropathy peripheral [Unknown]
  - Hallucination [Unknown]
  - Motor dysfunction [Unknown]
  - Gait inability [Unknown]
  - Walking disability [Unknown]
  - Stress [Unknown]
  - Sleep disorder [Unknown]
  - Feeling hot [Unknown]
  - Hyperhidrosis [Unknown]
  - Feeling abnormal [Unknown]
  - Limb discomfort [Unknown]
  - Decubitus ulcer [Unknown]
  - Paraesthesia [Unknown]
  - Insomnia [Unknown]
  - Hypoaesthesia [Unknown]
  - Dry mouth [Unknown]

NARRATIVE: CASE EVENT DATE: 20170101
